FAERS Safety Report 19741551 (Version 3)
Quarter: 2021Q4

REPORT INFORMATION
  Report Type: Report from Study
  Country: US (occurrence: US)
  Receive Date: 20210825
  Receipt Date: 20211118
  Transmission Date: 20220303
  Serious: Yes (Other)
  Sender: FDA-Public Use
  Company Number: NVSC2021US188192

PATIENT
  Sex: Female

DRUGS (1)
  1. ENTRESTO [Suspect]
     Active Substance: SACUBITRIL\VALSARTAN
     Indication: Product used for unknown indication
     Dosage: 1 DF, BID
     Route: 048
     Dates: start: 202012

REACTIONS (7)
  - Retinopathy [Unknown]
  - Cataract [Unknown]
  - Visual impairment [Unknown]
  - Arrhythmia [Unknown]
  - Loss of consciousness [Unknown]
  - Hypoacusis [Unknown]
  - Fall [Unknown]
